FAERS Safety Report 4464612-1 (Version None)
Quarter: 2004Q3

REPORT INFORMATION
  Report Type: 
  Country: None (occurrence: None)
  Receive Date: 20040927
  Receipt Date: 20040914
  Transmission Date: 20050211
  Serious: Yes (Death, Other)
  Sender: FDA-Public Use
  Company Number: 2004066002

PATIENT
  Age: 79 Year
  Sex: Male

DRUGS (8)
  1. VFEND [Suspect]
     Indication: ASPERGILLOSIS
     Dosage: 8 MG/KG (4 MG/KG, 2 IN 1D), INTRAVENOUS
     Route: 042
     Dates: start: 20040813
  2. VFEND [Suspect]
     Indication: SYSTEMIC CANDIDA
     Dosage: 8 MG/KG (4 MG/KG, 2 IN 1D), INTRAVENOUS
     Route: 042
     Dates: start: 20040813
  3. OMEPRAZOLE [Concomitant]
  4. ALL OTHER THERAPEUTIC PRODUCTS (ALL OTHER THERAPEUTIC PRODUCTS) [Concomitant]
  5. MIDAZOLAM HCL [Concomitant]
  6. REMIFENTANIL HYDROCHLORIDE (REMIFENTANIL HYDROCHLORIDE) [Concomitant]
  7. PRISTINAMYCIN (PRISTINAMYCIN) [Concomitant]
  8. LINEZOLID (LINEZOLID) [Concomitant]

REACTIONS (5)
  - ANAEMIA [None]
  - CARDIAC FAILURE [None]
  - MULTI-ORGAN FAILURE [None]
  - PLATELET COUNT DECREASED [None]
  - RESPIRATORY FAILURE [None]
